FAERS Safety Report 7416114-8 (Version None)
Quarter: 2011Q2

REPORT INFORMATION
  Report Type: 
  Country: None (occurrence: None)
  Receive Date: 20110414
  Receipt Date: 20110405
  Transmission Date: 20111010
  Serious: Yes (Death, Hospitalization, Other)
  Sender: FDA-Public Use
  Company Number: JP-ROCHE-769218

PATIENT
  Sex: Male
  Weight: 68 kg

DRUGS (21)
  1. ACTEMRA [Suspect]
     Indication: RHEUMATOID ARTHRITIS
     Route: 041
     Dates: start: 20091204, end: 20100301
  2. RHEUMATREX [Suspect]
     Route: 048
     Dates: start: 20110307, end: 20110317
  3. ISONIAZID [Concomitant]
     Route: 048
     Dates: end: 20110317
  4. CELCOX [Concomitant]
     Route: 048
     Dates: start: 20110201, end: 20110317
  5. ACTEMRA [Suspect]
     Route: 041
     Dates: start: 20100329, end: 20100622
  6. ALFAROL [Concomitant]
     Route: 048
     Dates: start: 20030201, end: 20110317
  7. RHEUMATREX [Suspect]
     Indication: RHEUMATOID ARTHRITIS
     Dosage: 6MG/WEEK- RECRUITMENT
     Route: 048
     Dates: start: 20030201, end: 20110306
  8. TAKEPRON [Concomitant]
     Route: 048
     Dates: end: 20110317
  9. PNEUMOCOCCAL VACCINE [Concomitant]
     Route: 030
     Dates: start: 20091201, end: 20091201
  10. RIDAURA [Concomitant]
     Route: 048
     Dates: start: 20090401, end: 20091201
  11. SELBEX [Concomitant]
     Dosage: FORM:MINUTE GRAIN
     Route: 048
     Dates: start: 20030201, end: 20110317
  12. PREDNISOLONE [Suspect]
     Route: 048
     Dates: start: 20110307, end: 20110317
  13. LIVALO [Concomitant]
     Route: 048
     Dates: end: 20110317
  14. LOXONIN [Concomitant]
     Dosage: FORM:TAPE
     Route: 062
     Dates: end: 20110317
  15. SODIUM AUROTHIOMALATE [Concomitant]
     Dosage: FORM: PERORAL AGENT;DOSAGE IS UNCERTAIN
     Route: 048
     Dates: start: 20040201
  16. BONALON [Concomitant]
     Route: 049
     Dates: start: 20030201, end: 20110317
  17. PREDNISOLONE [Suspect]
     Dosage: 30MG/WEEK- GRADUAL DECREASE
     Route: 048
     Dates: start: 20030101, end: 20110306
  18. FOLIC ACID [Concomitant]
     Route: 048
     Dates: start: 20040301, end: 20110317
  19. BLOPRESS [Concomitant]
     Route: 048
     Dates: end: 20110317
  20. CELCOX [Concomitant]
     Dosage: FORM:PERORAL AGENT
     Route: 048
     Dates: start: 20091201, end: 20091201
  21. ACTEMRA [Suspect]
     Route: 041
     Dates: start: 20100720, end: 20110307

REACTIONS (12)
  - BETA HAEMOLYTIC STREPTOCOCCAL INFECTION [None]
  - PNEUMONIA [None]
  - NECROTISING FASCIITIS [None]
  - PULMONARY HAEMATOMA [None]
  - SEPTIC SHOCK [None]
  - CHILLS [None]
  - DISSEMINATED INTRAVASCULAR COAGULATION [None]
  - RENAL FAILURE ACUTE [None]
  - FLUID RETENTION [None]
  - PANNICULITIS [None]
  - METABOLIC ACIDOSIS [None]
  - PULMONARY OEDEMA [None]
